FAERS Safety Report 10038586 (Version 1)
Quarter: 2014Q1

REPORT INFORMATION
  Report Type: Spontaneous
  Country: US (occurrence: None)
  Receive Date: 20140306
  Receipt Date: 20140306
  Transmission Date: 20141002
  Serious: Yes (Hospitalization)
  Sender: FDA-Public Use
  Company Number: 163-21880-13073474

PATIENT
  Age: 63 Year
  Sex: Male
  Weight: 86.2 kg

DRUGS (8)
  1. MULTIPLE (OTHER THERAPEUTIC PRODUCTS) (TABLETS) [Concomitant]
  2. GLUCOSAMINE CHONDROITIN (GLUCOSAMINE W/CHONDROITIN SULFATE) [Concomitant]
  3. REVLIMID (LENALIDOMIDE) (25 MILLIGRAM CAPSULES) [Suspect]
     Indication: PLASMA CELL MYELOMA
     Dosage: 25MG, 1 I 1D, PO
     Route: 048
     Dates: start: 200912
  4. COUMADIN (WARFARIN SODIUM) [Concomitant]
  5. DEXAMETHASONE (DEXAMETHASONE) [Concomitant]
  6. SIMVASTATIN (SIMVASTATIN) (TABLET) [Concomitant]
  7. FISH OIL (FISH OIL) (TABLETS) [Concomitant]
  8. ASPIRIN EC (ACETYLSALICYLIC ACID) (ENTERIC-COATED TABLET) [Concomitant]

REACTIONS (3)
  - Pulmonary embolism [None]
  - Full blood count decreased [None]
  - Thrombosis [None]
